FAERS Safety Report 14065288 (Version 4)
Quarter: 2018Q2

REPORT INFORMATION
  Report Type: Report from Study
  Country: RO (occurrence: RO)
  Receive Date: 20171009
  Receipt Date: 20180529
  Transmission Date: 20180711
  Serious: Yes (Other)
  Sender: FDA-Public Use
  Company Number: PHHY2016RO135373

PATIENT
  Age: 37 Year
  Sex: Female

DRUGS (8)
  1. TERTENSIF [Concomitant]
     Active Substance: INDAPAMIDE
     Indication: HYPERTENSION
     Dosage: UNK
     Route: 065
     Dates: start: 20100609
  2. SIGNIFOR [Suspect]
     Active Substance: PASIREOTIDE
     Indication: CARCINOID TUMOUR
     Dosage: 1.2 MG, UNK
     Route: 058
     Dates: start: 20160504, end: 20171001
  3. DUPHASTON [Concomitant]
     Active Substance: DYDROGESTERONE
     Indication: AMENORRHOEA
     Dosage: UNK
     Route: 065
     Dates: start: 20100710, end: 20170419
  4. DOSTINEX [Concomitant]
     Active Substance: CABERGOLINE
     Indication: PITUITARY-DEPENDENT CUSHING^S SYNDROME
     Dosage: UNK
     Route: 065
     Dates: start: 20130504
  5. JANUMET [Concomitant]
     Active Substance: METFORMIN HYDROCHLORIDE\SITAGLIPTIN PHOSPHATE
     Indication: TYPE 2 DIABETES MELLITUS
     Dosage: 0.05 MG, UNK
     Route: 065
     Dates: start: 201504
  6. LIPANTIL NANO [Concomitant]
     Indication: HYPERTRIGLYCERIDAEMIA
     Dosage: UNK
     Route: 065
     Dates: start: 20160504, end: 20170902
  7. ASPACARDIN [Concomitant]
     Indication: ELECTROLYTE SUBSTITUTION THERAPY
     Dosage: UNK
     Route: 065
     Dates: start: 20100609
  8. SIGNIFOR [Suspect]
     Active Substance: PASIREOTIDE
     Indication: PITUITARY-DEPENDENT CUSHING^S SYNDROME
     Dosage: UNK
     Route: 058
     Dates: start: 20141015, end: 20160503

REACTIONS (3)
  - Hepatic enzyme increased [Recovered/Resolved]
  - Hyperuricaemia [Unknown]
  - Hyposideraemia [Recovered/Resolved]

NARRATIVE: CASE EVENT DATE: 20160504
